FAERS Safety Report 11727636 (Version 1)
Quarter: 2015Q4

REPORT INFORMATION
  Report Type: Spontaneous
  Country: RU (occurrence: RU)
  Receive Date: 20151112
  Receipt Date: 20151112
  Transmission Date: 20160304
  Serious: Yes (Death, Hospitalization, Other)
  Sender: FDA-Public Use
  Company Number: RU-JNJFOC-20151109653

PATIENT
  Age: 90 Year
  Sex: Female

DRUGS (2)
  1. THROMBO ASS [Concomitant]
     Active Substance: ASPIRIN
     Indication: ARRHYTHMIA
     Route: 065
     Dates: start: 20150708
  2. XARELTO [Suspect]
     Active Substance: RIVAROXABAN
     Indication: ARRHYTHMIA
     Route: 048
     Dates: start: 20150823, end: 20150930

REACTIONS (8)
  - Death [Fatal]
  - Thrombosis [Unknown]
  - Off label use [Unknown]
  - Drug dose omission [Unknown]
  - Intentional product misuse [Unknown]
  - Somnolence [Unknown]
  - Leg amputation [Unknown]
  - Dental plaque [Unknown]

NARRATIVE: CASE EVENT DATE: 20150823
